FAERS Safety Report 10211717 (Version 1)
Quarter: 2014Q2

REPORT INFORMATION
  Report Type: Spontaneous
  Country: BE (occurrence: None)
  Receive Date: 20140528
  Receipt Date: 20140528
  Transmission Date: 20141212
  Serious: Yes (Hospitalization)
  Sender: FDA-Public Use
  Company Number: 2014AP003069

PATIENT
  Age: 51 Year
  Sex: Female

DRUGS (3)
  1. PANTOPRAZOLE [Suspect]
     Indication: PEPTIC ULCER
  2. OMEPRAZOLE [Suspect]
     Indication: PEPTIC ULCER
  3. AMLODIPINE (AMLODIPINE) [Concomitant]

REACTIONS (11)
  - Hypomagnesaemia [None]
  - Ataxia [None]
  - Confusional state [None]
  - Nystagmus [None]
  - Muscle spasms [None]
  - Convulsion [None]
  - Gastrointestinal haemorrhage [None]
  - Disease recurrence [None]
  - Peptic ulcer [None]
  - Therapy cessation [None]
  - Gastrinoma [None]
